FAERS Safety Report 4449394-1 (Version None)
Quarter: 2004Q3

REPORT INFORMATION
  Report Type: 
  Country: None (occurrence: None)
  Receive Date: 20040914
  Receipt Date: 20040831
  Transmission Date: 20050211
  Serious: No
  Sender: FDA-Public Use
  Company Number: 2004UW18394

PATIENT
  Age: 97 Year
  Sex: Female

DRUGS (2)
  1. SEROQUEL [Suspect]
     Indication: DEMENTIA
     Dosage: 25 MG QD PO
     Route: 048
  2. SEROQUEL [Suspect]
     Indication: DEMENTIA
     Dosage: 25 MG PRN PO
     Route: 048

REACTIONS (5)
  - CONSTIPATION [None]
  - DYSPHAGIA [None]
  - EATING DISORDER [None]
  - MENTAL IMPAIRMENT [None]
  - TREMOR [None]
